FAERS Safety Report 5732058-1 (Version None)
Quarter: 2008Q2

REPORT INFORMATION
  Report Type: 
  Country: None (occurrence: None)
  Receive Date: 20080508
  Receipt Date: 20080505
  Transmission Date: 20081010
  Serious: Yes (Other)
  Sender: FDA-Public Use
  Company Number: PHHY2008ZA07169

PATIENT
  Age: 10 Year
  Sex: Male

DRUGS (2)
  1. RITALIN LA [Suspect]
     Indication: ATTENTION DEFICIT/HYPERACTIVITY DISORDER
     Dosage: 10 MG
     Route: 048
  2. RITALIN LA [Suspect]
     Dosage: 20 MG
     Route: 048

REACTIONS (1)
  - PSYCHOTIC DISORDER [None]
